FAERS Safety Report 17025307 (Version 2)
Quarter: 2019Q4

REPORT INFORMATION
  Report Type: Spontaneous
  Country: IT (occurrence: IT)
  Receive Date: 20191113
  Receipt Date: 20191203
  Transmission Date: 20200122
  Serious: Yes (Other)
  Sender: FDA-Public Use
  Company Number: IT-GLAXOSMITHKLINE-IT2019203277

PATIENT
  Age: 73 Year
  Sex: Male

DRUGS (1)
  1. DICLOFENAC SODIUM. [Suspect]
     Active Substance: DICLOFENAC SODIUM
     Indication: INTERVERTEBRAL DISC PROTRUSION
     Dosage: 25 MG, PRN
     Route: 048

REACTIONS (3)
  - Abdominal pain [Recovering/Resolving]
  - Gastritis erosive [Recovering/Resolving]
  - Melaena [Recovering/Resolving]

NARRATIVE: CASE EVENT DATE: 20191027
